FAERS Safety Report 7599552-2 (Version None)
Quarter: 2011Q3

REPORT INFORMATION
  Report Type: 
  Country: None (occurrence: None)
  Receive Date: 20110711
  Receipt Date: 20090420
  Transmission Date: 20111222
  Serious: No
  Sender: FDA-Public Use
  Company Number: 2009BI012369

PATIENT
  Age: 58 Year
  Sex: Female

DRUGS (1)
  1. TYSABRI [Suspect]
     Indication: MULTIPLE SCLEROSIS
     Route: 042
     Dates: start: 20071121

REACTIONS (8)
  - DEPRESSION [None]
  - AMNESIA [None]
  - URINARY INCONTINENCE [None]
  - VISUAL IMPAIRMENT [None]
  - PANIC REACTION [None]
  - VISUAL FIELD DEFECT [None]
  - ANXIETY [None]
  - HEADACHE [None]
